FAERS Safety Report 5458141-6 (Version None)
Quarter: 2007Q3

REPORT INFORMATION
  Report Type: 
  Country: None (occurrence: None)
  Receive Date: 20070917
  Receipt Date: 20070831
  Transmission Date: 20080115
  Serious: Yes (Other)
  Sender: FDA-Public Use
  Company Number: 160898ISR

PATIENT
  Age: 40 Year
  Sex: Male

DRUGS (2)
  1. PROPRANOLOL [Suspect]
     Indication: AKATHISIA
     Dosage: (80 MG) ORAL
     Route: 048
     Dates: start: 20070719
  2. DEPAKOTE [Suspect]
     Indication: MOOD SWINGS
     Dosage: 2 GRAM (1 GRAM, 2 IN 1 D) ORAL
     Route: 048
     Dates: start: 20070704

REACTIONS (6)
  - CIRCULATORY COLLAPSE [None]
  - DIZZINESS [None]
  - FALL [None]
  - HEADACHE [None]
  - MALAISE [None]
  - SYNCOPE [None]
